FAERS Safety Report 5662608-5 (Version None)
Quarter: 2008Q1

REPORT INFORMATION
  Report Type: 
  Country: None (occurrence: None)
  Receive Date: 20080313
  Receipt Date: 20080304
  Transmission Date: 20080703
  Serious: Yes (Other)
  Sender: FDA-Public Use
  Company Number: US-JNJFOC-20080300914

PATIENT
  Sex: Female

DRUGS (1)
  1. REMICADE [Suspect]
     Indication: JUVENILE ARTHRITIS
     Dosage: RECEIVED 4 INFUSIONS
     Route: 042

REACTIONS (6)
  - APPENDICITIS [None]
  - KIDNEY INFECTION [None]
  - LUPUS-LIKE SYNDROME [None]
  - RASH [None]
  - STOMATITIS [None]
  - URTICARIA [None]
